FAERS Safety Report 4314356-1 (Version None)
Quarter: 2004Q1

REPORT INFORMATION
  Report Type: 
  Country: None (occurrence: None)
  Receive Date: 20040308
  Receipt Date: 20040223
  Transmission Date: 20041129
  Serious: Yes (Death)
  Sender: FDA-Public Use
  Company Number: USA-2003-0011352

PATIENT
  Age: 62 Year
  Sex: Male
  Weight: 97.5 kg

DRUGS (7)
  1. OXYCODONE HCL [Suspect]
  2. HYDROCODONE BITARTRATE [Suspect]
  3. PHENYLTOLOXAMINE (PHENYLTOLOXAMINE) [Suspect]
  4. IBUPROFEN [Suspect]
  5. ACETAMINOPHEN [Suspect]
  6. CAFFEINE (CAFFEINE) [Suspect]
  7. NICOTINE [Suspect]

REACTIONS (4)
  - COMPLETED SUICIDE [None]
  - HAEMOTHORAX [None]
  - INJURY [None]
  - LACERATION [None]
